FAERS Safety Report 5916666-0 (Version None)
Quarter: 2008Q4

REPORT INFORMATION
  Report Type: 
  Country: None (occurrence: None)
  Receive Date: 20081013
  Receipt Date: 20081003
  Transmission Date: 20090506
  Serious: Yes (Hospitalization)
  Sender: FDA-Public Use
  Company Number: GB-ALLERGAN-0812605US

PATIENT

DRUGS (2)
  1. BOTOX PLACEBO [Suspect]
     Indication: MUSCLE SPASTICITY
  2. BLINDED BOTULINUM TOXIN TYPE A - GENERAL [Suspect]
     Indication: MUSCLE SPASTICITY

REACTIONS (1)
  - URINARY TRACT INFECTION [None]
